FAERS Safety Report 9908486 (Version 1)
Quarter: 2014Q1

REPORT INFORMATION
  Report Type: Spontaneous
  Country: US (occurrence: None)
  Receive Date: 20140212
  Receipt Date: 20140212
  Transmission Date: 20141002
  Serious: Yes (Hospitalization)
  Sender: FDA-Public Use
  Company Number: None

PATIENT
  Age: 60 Year
  Sex: Male
  Weight: 99.7 kg

DRUGS (1)
  1. PIPERACILLIN/TAZOBACTAM [Suspect]
     Indication: PNEUMONIA
     Route: 042
     Dates: start: 20140115, end: 20140121

REACTIONS (6)
  - Rash [None]
  - Urticaria [None]
  - Pruritus [None]
  - Renal failure acute [None]
  - Tubulointerstitial nephritis [None]
  - Rash maculo-papular [None]
